FAERS Safety Report 11753859 (Version 1)
Quarter: 2015Q4

REPORT INFORMATION
  Report Type: Spontaneous
  Country: US (occurrence: US)
  Receive Date: 20151119
  Receipt Date: 20151119
  Transmission Date: 20160304
  Serious: Yes (Other)
  Sender: FDA-Public Use
  Company Number: US-SA-2015SA180003

PATIENT
  Age: 73 Year
  Sex: Male

DRUGS (1)
  1. BCG FOR IMMUNOTHERAPY [Suspect]
     Active Substance: BACILLUS CALMETTE-GUERIN ANTIGEN, UNSPECIFIED SUBSTRAIN
     Indication: BLADDER CANCER
     Dosage: RECEIVED HIS THIRD ROUND OF INTRAVESICULAR BCG INSTALLATION SIX WEEKS PRIOR
     Route: 043

REACTIONS (7)
  - Pneumonia [Recovering/Resolving]
  - Cough [Recovered/Resolved]
  - Malaise [Recovered/Resolved]
  - Weight decreased [Recovered/Resolved]
  - Disseminated Bacillus Calmette-Guerin infection [Recovering/Resolving]
  - Pyrexia [Recovered/Resolved]
  - Metastasis [Recovering/Resolving]
